APPROVED DRUG PRODUCT: DILTIAZEM HYDROCHLORIDE
Active Ingredient: DILTIAZEM HYDROCHLORIDE
Strength: 5MG/ML
Dosage Form/Route: INJECTABLE;INJECTION
Application: A202651 | Product #001
Applicant: HIKMA FARMACEUTICA PORTUGAL SA
Approved: Aug 9, 2012 | RLD: No | RS: No | Type: DISCN